FAERS Safety Report 9504391 (Version 2)
Quarter: 2013Q3

REPORT INFORMATION
  Report Type: Spontaneous
  Country: FR (occurrence: FR)
  Receive Date: 20130906
  Receipt Date: 20130910
  Transmission Date: 20140515
  Serious: Yes (Hospitalization)
  Sender: FDA-Public Use
  Company Number: FR-JNJFOC-20130816516

PATIENT
  Age: 86 Year
  Sex: Male

DRUGS (10)
  1. RISPERDAL [Suspect]
     Indication: PRODUCT USED FOR UNKNOWN INDICATION
     Dosage: MONTHLY INTAKE WAS ON 8TH DAY OF EVERY MONTH, IN EVENING.
     Route: 048
     Dates: start: 201112, end: 20130716
  2. NORSET [Suspect]
     Indication: PRODUCT USED FOR UNKNOWN INDICATION
     Route: 048
     Dates: end: 20130716
  3. NEURONTIN [Concomitant]
     Route: 065
     Dates: start: 20070714
  4. SERESTA [Concomitant]
     Route: 065
  5. SERESTA [Concomitant]
     Route: 065
  6. KARDEGIC [Concomitant]
     Route: 065
  7. UVEDOSE [Concomitant]
     Dosage: 8TH DAY OF EACH MONTH
     Route: 065
     Dates: start: 2011
  8. UVEDOSE [Concomitant]
     Route: 065
     Dates: start: 20130808
  9. VALIUM [Concomitant]
     Route: 065
  10. VALIUM [Concomitant]
     Dosage: AT BED TIME
     Route: 065

REACTIONS (5)
  - Abnormal behaviour [Unknown]
  - Urinary retention [Recovered/Resolved]
  - Confusional state [Unknown]
  - Somnolence [Recovered/Resolved]
  - Urinary tract infection [Unknown]
